FAERS Safety Report 8720252 (Version 2)
Quarter: 2012Q4

REPORT INFORMATION
  Report Type: 
  Country: FR (occurrence: FR)
  Receive Date: 20120813
  Receipt Date: 20121109
  Transmission Date: 20130627
  Serious: Yes (Life-Threatening, Hospitalization)
  Sender: FDA-Public Use
  Company Number: FR-ASTRAZENECA-2012SE55927

PATIENT
  Age: 36 Year
  Sex: Female

DRUGS (7)
  1. XEROQUEL [Suspect]
     Indication: PSYCHOTIC DISORDER
     Route: 048
     Dates: start: 20120328, end: 201206
  2. XEROQUEL [Suspect]
     Indication: PSYCHOTIC DISORDER
     Route: 048
     Dates: start: 20120625, end: 20120720
  3. NOZINAN [Suspect]
     Route: 048
     Dates: start: 20120327, end: 20120711
  4. NOZINAN [Suspect]
     Route: 048
     Dates: start: 20120712, end: 20120726
  5. LEPTICUR [Concomitant]
     Route: 065
     Dates: start: 20111222, end: 20120711
  6. LEPTICUR [Concomitant]
     Route: 065
     Dates: start: 20120712, end: 20120717
  7. IMOVANE [Concomitant]
     Route: 048

REACTIONS (7)
  - Intestinal obstruction [Recovered/Resolved]
  - Metabolic acidosis [Recovered/Resolved]
  - Diarrhoea [Recovered/Resolved]
  - Faecal vomiting [Recovered/Resolved]
  - Infection [Recovered/Resolved]
  - Hypovolaemia [Recovered/Resolved]
  - Sepsis [Recovered/Resolved]
